FAERS Safety Report 6812631-X (Version None)
Quarter: 2010Q3

REPORT INFORMATION
  Report Type: 
  Country: None (occurrence: None)
  Receive Date: 20100701
  Receipt Date: 20100621
  Transmission Date: 20110219
  Serious: Yes (Hospitalization)
  Sender: FDA-Public Use
  Company Number: PL-PFIZER INC-2010077462

PATIENT
  Age: 60 Year
  Sex: Male
  Weight: 85 kg

DRUGS (4)
  1. ZELDOX [Suspect]
     Indication: PSYCHOTIC DISORDER
     Dosage: 10MG,1X/DAY X 3 DAYS
     Route: 030
     Dates: start: 20100524, end: 20100526
  2. ZELDOX [Suspect]
     Dosage: 80 MG, 2X/DAY
     Route: 048
     Dates: start: 20100526, end: 20100601
  3. RISPOLEPT [Concomitant]
     Dosage: 4 MG, UNK
  4. PERPHENAZINE [Concomitant]
     Dosage: 100 MG, UNK

REACTIONS (2)
  - CARDIAC VENTRICULAR DISORDER [None]
  - CONDUCTION DISORDER [None]
